FAERS Safety Report 6962486-8 (Version None)
Quarter: 2010Q3

REPORT INFORMATION
  Report Type: 
  Country: None (occurrence: None)
  Receive Date: 20100902
  Receipt Date: 20100825
  Transmission Date: 20110219
  Serious: Yes (Death)
  Sender: FDA-Public Use
  Company Number: CN-JNJFOC-20100808837

PATIENT

DRUGS (1)
  1. ITRACONAZOLE [Suspect]
     Indication: SYSTEMIC MYCOSIS
     Route: 065

REACTIONS (1)
  - DEATH [None]
